FAERS Safety Report 23714360 (Version 3)
Quarter: 2024Q2

REPORT INFORMATION
  Report Type: Report from Study
  Country: EG (occurrence: EG)
  Receive Date: 20240405
  Receipt Date: 20240419
  Transmission Date: 20240716
  Serious: No
  Sender: FDA-Public Use
  Company Number: EG-SANDOZ-SDZ2024EG036444

PATIENT
  Age: 12 Year
  Sex: Male
  Weight: 30 kg

DRUGS (5)
  1. OMNITROPE [Suspect]
     Active Substance: SOMATROPIN
     Indication: Growth hormone deficiency
     Dosage: 1 MG
     Route: 058
     Dates: start: 202304
  2. Cetal [Concomitant]
     Indication: Headache
     Dosage: 500 MG, HALF OR 1 TAB A DAY AS NEEDED
     Route: 048
     Dates: start: 202203
  3. LEVOTHYROXINE [Concomitant]
     Active Substance: LEVOTHYROXINE\LEVOTHYROXINE SODIUM
     Indication: Thyroid disorder
     Dosage: 100 MG, IN MORNING ON EMPTY STOMACH
     Route: 048
     Dates: start: 202203
  4. Micort [Concomitant]
     Indication: Thyroid disorder
     Dosage: 10 MG, 1 TABLET IN MORNING AND HALF IN AFTERNOON
     Route: 048
     Dates: start: 202203
  5. OMEGAPRESS [Concomitant]
     Indication: Polyuria
     Dosage: 0.1 MG, BID
     Route: 048
     Dates: start: 202203

REACTIONS (6)
  - Fatigue [Not Recovered/Not Resolved]
  - Pain in extremity [Not Recovered/Not Resolved]
  - Off label use [Unknown]
  - Wrong technique in device usage process [Unknown]
  - Device issue [Unknown]
  - Device breakage [Unknown]

NARRATIVE: CASE EVENT DATE: 20240201
